FAERS Safety Report 15468296 (Version 1)
Quarter: 2018Q4

REPORT INFORMATION
  Report Type: Report from Study
  Country: NL (occurrence: NL)
  Receive Date: 20181005
  Receipt Date: 20181005
  Transmission Date: 20190204
  Serious: Yes (Death, Life-Threatening, Hospitalization)
  Sender: FDA-Public Use
  Company Number: NL-SA-2018SA236214

PATIENT
  Age: 9 Year
  Sex: Female

DRUGS (33)
  1. CLOFARABINE. [Concomitant]
     Active Substance: CLOFARABINE
     Dosage: 32 MG, QD
     Route: 042
     Dates: start: 20180811, end: 20180814
  2. TRANEXAMINEZUUR [Concomitant]
     Dosage: 750 MG, QD
     Route: 042
     Dates: start: 20180731, end: 20180820
  3. FUROSEMIDE. [Concomitant]
     Active Substance: FUROSEMIDE
     Dosage: 30 MG
     Route: 042
     Dates: start: 20180821, end: 20180825
  4. FILGRASTIM [Concomitant]
     Active Substance: FILGRASTIM
     Dosage: 300 MG
     Route: 042
  5. VORICONAZOL [Concomitant]
     Active Substance: VORICONAZOLE
     Indication: PROPHYLAXIS
     Dosage: 700 MG, QD
     Route: 042
     Dates: start: 20180730, end: 20180806
  6. VORICONAZOL [Concomitant]
     Active Substance: VORICONAZOLE
     Dosage: 1000 UNK
     Route: 042
     Dates: start: 20180806, end: 20180816
  7. ACICLOVIR [Concomitant]
     Active Substance: ACYCLOVIR
     Indication: PROPHYLAXIS
     Dosage: 510 MG
     Route: 042
     Dates: start: 20180816, end: 20180920
  8. CLEMASTINE [Suspect]
     Active Substance: CLEMASTINE
     Dosage: 0.9 MG
     Dates: start: 20180807, end: 20180808
  9. CIPROFLOXACINE [CIPROFLOXACIN HYDROCHLORIDE] [Concomitant]
     Dosage: 900 MG, QD
     Route: 042
     Dates: start: 20180816, end: 20180827
  10. MORFINE [Concomitant]
     Active Substance: MORPHINE
     Dosage: 8 MG
     Route: 042
     Dates: start: 20180827, end: 20180831
  11. PREDNISOLONE. [Suspect]
     Active Substance: PREDNISOLONE
     Dosage: 60 MG, QD
     Dates: start: 20180807, end: 20180808
  12. FLUDARABINE [Concomitant]
     Active Substance: FLUDARABINE PHOSPHATE
     Dosage: 11 MG, QD
     Route: 042
     Dates: start: 20180811, end: 20180814
  13. PARACETAMOL [Concomitant]
     Active Substance: ACETAMINOPHEN
     Dosage: 1800 MG, QD
     Route: 042
     Dates: start: 20180802, end: 20180807
  14. VORICONAZOL [Concomitant]
     Active Substance: VORICONAZOLE
     Dosage: 1000 UNK
     Route: 042
     Dates: start: 20180816, end: 20180822
  15. BEPANTHEN [PANTHENOL] [Concomitant]
     Dosage: UNK
     Route: 003
     Dates: start: 20180602, end: 20180921
  16. PREDNISOLONE. [Suspect]
     Active Substance: PREDNISOLONE
     Dosage: 30 MG
     Dates: start: 20180818, end: 20180923
  17. CYCLOSPORIN A [Suspect]
     Active Substance: CYCLOSPORINE
     Dosage: 460 MG
     Dates: start: 20180820, end: 20180918
  18. BUSULFAN. [Concomitant]
     Active Substance: BUSULFAN
     Dosage: 127 MG, QD
     Route: 042
     Dates: start: 20180811, end: 20180814
  19. CIPROFLOXACINE [CIPROFLOXACIN HYDROCHLORIDE] [Concomitant]
     Indication: PROPHYLAXIS
     Dosage: 900 MG, QD
     Route: 042
     Dates: start: 20180806, end: 20180816
  20. PARACETAMOL [Concomitant]
     Active Substance: ACETAMINOPHEN
     Dosage: 1800 MG, PRN
     Route: 042
     Dates: start: 20180813, end: 20180901
  21. VANCOMYCINE [VANCOMYCIN] [Concomitant]
     Dosage: 1800 MG, QD
     Route: 042
     Dates: start: 20180803, end: 20180806
  22. ANTI-THYMOCYTE GLOBULIN (RABBIT) NOS [Suspect]
     Active Substance: LAPINE T-LYMPHOCYTE IMMUNE GLOBULIN
     Dosage: 67 MG, QD
     Dates: start: 20180807, end: 20180808
  23. ESOMEPRAZOLE [ESOMEPRAZOLE MAGNESIUM] [Concomitant]
     Dosage: 20 MG, QD
     Route: 048
     Dates: start: 20180611, end: 20180827
  24. GRANISETRON [Concomitant]
     Active Substance: GRANISETRON
     Dosage: 2 MG
     Route: 042
     Dates: start: 20180815, end: 20180904
  25. AMLODIPINE [Concomitant]
     Active Substance: AMLODIPINE BESYLATE
     Dosage: 6 MG, QD
     Route: 048
     Dates: start: 20180810, end: 20180905
  26. FOSAPREPITANT [Concomitant]
     Active Substance: FOSAPREPITANT
     Dosage: 60 MG
     Route: 042
     Dates: start: 20180814, end: 20180819
  27. NOVORAPID [Concomitant]
     Active Substance: INSULIN ASPART
     Dosage: UNK
     Route: 042
     Dates: start: 20180819, end: 20180923
  28. CLEMASTINE [Suspect]
     Active Substance: CLEMASTINE
     Dosage: 450 MG, QD
     Dates: start: 20180811, end: 20180812
  29. GRANISETRON [Concomitant]
     Active Substance: GRANISETRON
     Dosage: 2 MG, QD
     Route: 042
     Dates: start: 20180718, end: 20180807
  30. VANCOMYCINE [VANCOMYCIN] [Concomitant]
     Dosage: 1000 MG
     Dates: start: 20180806, end: 20180809
  31. PHENOXYMETHYLPENICILLIN [Concomitant]
     Active Substance: PENICILLIN V
     Dosage: 1500 MG, QD
     Route: 048
     Dates: start: 20180714, end: 20180806
  32. TRAMADOL. [Concomitant]
     Active Substance: TRAMADOL
     Dosage: 120 MG
     Route: 048
     Dates: start: 20180824, end: 20180824
  33. CEFTAZIDIM [Concomitant]
     Active Substance: CEFTAZIDIME
     Indication: PROPHYLAXIS
     Dosage: 4500 MG, QD
     Route: 042
     Dates: start: 20180803, end: 20180806

REACTIONS (2)
  - Hyperglycaemia [Recovered/Resolved]
  - Dyspnoea [Fatal]

NARRATIVE: CASE EVENT DATE: 20180813
